FAERS Safety Report 4898031-0 (Version None)
Quarter: 2006Q1

REPORT INFORMATION
  Report Type: 
  Country: None (occurrence: None)
  Receive Date: 20060201
  Receipt Date: 20060116
  Transmission Date: 20060701
  Serious: Yes (Other)
  Sender: FDA-Public Use
  Company Number: GB-ROCHE-432575

PATIENT
  Age: 43 Year
  Sex: Female
  Weight: 59 kg

DRUGS (4)
  1. BONDRONAT [Suspect]
     Indication: METASTASES TO BONE
     Route: 048
     Dates: start: 20040615, end: 20051207
  2. ARIMIDEX [Concomitant]
     Indication: BREAST CANCER
     Route: 048
     Dates: start: 20040615
  3. PREDNISOLONE [Concomitant]
     Indication: ARTHRALGIA
     Route: 048
     Dates: start: 20050715, end: 20050915
  4. OXYCONTIN [Concomitant]
     Indication: PAIN
     Route: 048
     Dates: start: 20040615

REACTIONS (1)
  - JAW DISORDER [None]
